FAERS Safety Report 6634757-6 (Version None)
Quarter: 2010Q1

REPORT INFORMATION
  Report Type: 
  Country: None (occurrence: None)
  Receive Date: 20100312
  Receipt Date: 20100312
  Transmission Date: 20100710
  Serious: Yes (Death, Hospitalization)
  Sender: FDA-Public Use
  Company Number: None

PATIENT
  Sex: Male

DRUGS (3)
  1. AZACITADINE 75 MG/ M2 QD  IV [Suspect]
     Indication: ACUTE MYELOID LEUKAEMIA
     Dosage: AZACITIDINE 75 MG/M2 QD IV
     Route: 042
  2. REVLIMID [Suspect]
     Dosage: REVLEMMID 25 MG QD PO
     Route: 048
  3. SEE 4 PAGE ATTACH [Concomitant]

REACTIONS (5)
  - EPISTAXIS [None]
  - HAEMOPTYSIS [None]
  - HYPERBILIRUBINAEMIA [None]
  - PNEUMONIA [None]
  - RENAL FAILURE CHRONIC [None]
